FAERS Safety Report 8816816 (Version 1)
Quarter: 2012Q4

REPORT INFORMATION
  Report Type: Spontaneous
  Country: GB (occurrence: None)
  Receive Date: 20121001
  Receipt Date: 20121001
  Transmission Date: 20130627
  Serious: Yes (Death)
  Sender: FDA-Public Use
  Company Number: GB-GDP-12415140

PATIENT
  Age: 17 Year
  Sex: Female

DRUGS (3)
  1. LYMECYCLINE [Suspect]
     Indication: PRODUCT USED FOR UNKNOWN INDICATION
     Route: 048
  2. ADAPALENE [Suspect]
     Indication: PRODUCT USED FOR UNKNOWN INDICATION
     Route: 061
  3. CYPROTERONE ACETATE\ETHINYL ESTRADIOL [Suspect]
     Route: 048

REACTIONS (1)
  - Pulmonary embolism [None]
